FAERS Safety Report 18135071 (Version 1)
Quarter: 2020Q3

REPORT INFORMATION
  Report Type: Spontaneous
  Country: US (occurrence: US)
  Receive Date: 20200811
  Receipt Date: 20200811
  Transmission Date: 20201103
  Serious: No
  Sender: FDA-Public Use
  Company Number: None

PATIENT
  Age: 51 Year
  Sex: Female
  Weight: 88.65 kg

DRUGS (3)
  1. VITAMIN D [Concomitant]
     Active Substance: VITAMIN D NOS
  2. KENALOG [Suspect]
     Active Substance: TRIAMCINOLONE ACETONIDE
     Indication: CATARACT OPERATION
     Dates: start: 20200625
  3. VYVANSE [Concomitant]
     Active Substance: LISDEXAMFETAMINE DIMESYLATE

REACTIONS (16)
  - Irritability [None]
  - Vitamin D decreased [None]
  - Throat tightness [None]
  - Burning sensation [None]
  - Documented hypersensitivity to administered product [None]
  - Dyspnoea [None]
  - Vomiting [None]
  - Inflammation [None]
  - Dizziness [None]
  - Headache [None]
  - Blood potassium decreased [None]
  - Muscular weakness [None]
  - Nausea [None]
  - Muscle spasms [None]
  - Abdominal pain upper [None]
  - Sleep disorder [None]

NARRATIVE: CASE EVENT DATE: 20200625
